FAERS Safety Report 7832882-5 (Version None)
Quarter: 2011Q4

REPORT INFORMATION
  Report Type: 
  Country: None (occurrence: None)
  Receive Date: 20111024
  Receipt Date: 20111015
  Transmission Date: 20120403
  Serious: Yes (Other)
  Sender: FDA-Public Use
  Company Number: DE-PAR PHARMACEUTICAL, INC-2011SCPR003299

PATIENT

DRUGS (1)
  1. HYDROXYUREA [Suspect]
     Indication: ESSENTIAL THROMBOCYTHAEMIA
     Dosage: 750 MG/D
     Route: 065

REACTIONS (3)
  - ACTINIC KERATOSIS [None]
  - BOWEN'S DISEASE [None]
  - PRECANCEROUS SKIN LESION [None]
